FAERS Safety Report 16767909 (Version 2)
Quarter: 2019Q4

REPORT INFORMATION
  Report Type: Spontaneous
  Country: RO (occurrence: RO)
  Receive Date: 20190903
  Receipt Date: 20191127
  Transmission Date: 20200122
  Serious: Yes (Hospitalization)
  Sender: FDA-Public Use
  Company Number: RO-JNJFOC-20190823920

PATIENT
  Sex: Male
  Weight: 98 kg

DRUGS (5)
  1. NITROPECTOR [Concomitant]
  2. STELARA [Suspect]
     Active Substance: USTEKINUMAB
     Indication: PSORIASIS
     Dosage: THE TREATEMENT WITH USTEKINUMAB WAS INITIATED ON 22 OR 23/JUL/2019
     Route: 058
  3. CANDESARTAN CILEXETIL. [Concomitant]
     Active Substance: CANDESARTAN CILEXETIL
  4. MILURIT [Concomitant]
     Active Substance: ALLOPURINOL
  5. TERTENSIF [Concomitant]
     Active Substance: INDAPAMIDE

REACTIONS (3)
  - Hepatic failure [Unknown]
  - Guttate psoriasis [Unknown]
  - Psoriasis [Recovering/Resolving]

NARRATIVE: CASE EVENT DATE: 2019
